FAERS Safety Report 17376121 (Version 2)
Quarter: 2020Q1

REPORT INFORMATION
  Report Type: Spontaneous
  Country: US (occurrence: US)
  Receive Date: 20200206
  Receipt Date: 20200319
  Transmission Date: 20200409
  Serious: Yes (Hospitalization)
  Sender: FDA-Public Use
  Company Number: US-ASTRAZENECA-2020SE16846

PATIENT
  Sex: Female
  Weight: 68.5 kg

DRUGS (5)
  1. VITAMIN D [Concomitant]
     Active Substance: VITAMIN D NOS
  2. EFFEXOR XR [Concomitant]
     Active Substance: VENLAFAXINE HYDROCHLORIDE
  3. METFORMIN [Concomitant]
     Active Substance: METFORMIN HYDROCHLORIDE
  4. ASPIRIN. [Concomitant]
     Active Substance: ASPIRIN
  5. BYDUREON [Suspect]
     Active Substance: EXENATIDE
     Indication: WEIGHT ABNORMAL
     Route: 058
     Dates: start: 201908

REACTIONS (8)
  - Feeling abnormal [Recovered/Resolved]
  - Off label use [Unknown]
  - Pruritus [Unknown]
  - Intentional device misuse [Unknown]
  - Chest discomfort [Recovered/Resolved]
  - Injection site mass [Unknown]
  - Product dose omission [Unknown]
  - Drug delivery system issue [Unknown]
